FAERS Safety Report 6138426-0 (Version None)
Quarter: 2009Q1

REPORT INFORMATION
  Report Type: 
  Country: None (occurrence: None)
  Receive Date: 20090331
  Receipt Date: 20090323
  Transmission Date: 20090719
  Serious: Yes (Hospitalization)
  Sender: FDA-Public Use
  Company Number: US-ELI_LILLY_AND_COMPANY-US200903005899

PATIENT
  Sex: Female

DRUGS (13)
  1. HUMALOG [Suspect]
     Indication: TYPE 2 DIABETES MELLITUS
     Dosage: UNK, AS NEEDED
     Dates: start: 20060101
  2. DULOXETINE HYDROCHLORIDE [Suspect]
  3. LANTUS [Concomitant]
     Indication: TYPE 2 DIABETES MELLITUS
     Dosage: 40 U, EACH EVENING
  4. GLUCOPHAGE [Concomitant]
     Indication: TYPE 2 DIABETES MELLITUS
  5. SIMVASTATIN [Concomitant]
     Dosage: 80 MG, UNK
  6. CLONAZEPAM [Concomitant]
  7. AMLODIPINE BESYLATE [Concomitant]
  8. NITROGLYCERIN [Concomitant]
  9. AVAPRO [Concomitant]
  10. AMBIEN CR [Concomitant]
  11. LAMICTAL [Concomitant]
  12. ASPIRIN [Concomitant]
  13. LORATADINE [Concomitant]

REACTIONS (4)
  - ANXIETY [None]
  - BLOOD GLUCOSE DECREASED [None]
  - BLOOD GLUCOSE INCREASED [None]
  - CONVULSION [None]
